FAERS Safety Report 12938949 (Version 1)
Quarter: 2016Q4

REPORT INFORMATION
  Report Type: Spontaneous
  Country: US (occurrence: US)
  Receive Date: 20161114
  Receipt Date: 20161114
  Transmission Date: 20170207
  Serious: Yes (Life-Threatening, Hospitalization)
  Sender: FDA-Public Use
  Company Number: None

PATIENT
  Age: 53 Year
  Sex: Male
  Weight: 63.4 kg

DRUGS (1)
  1. AVASTIN [Suspect]
     Active Substance: BEVACIZUMAB
     Indication: RECTAL CANCER STAGE IV

REACTIONS (5)
  - Gastrointestinal necrosis [None]
  - Dialysis [None]
  - Device dependence [None]
  - Intestinal ischaemia [None]
  - Renal failure [None]

NARRATIVE: CASE EVENT DATE: 20161105
